FAERS Safety Report 15307053 (Version 3)
Quarter: 2023Q2

REPORT INFORMATION
  Report Type: Other
  Country: HU (occurrence: HU)
  Receive Date: 20180822
  Receipt Date: 20230520
  Transmission Date: 20230722
  Serious: Yes (Hospitalization, Other)
  Sender: FDA-Public Use
  Company Number: HU-TAKEDA-2018TEU004663

PATIENT

DRUGS (6)
  1. PANTOPRAZOLE SODIUM [Suspect]
     Active Substance: PANTOPRAZOLE SODIUM
     Indication: General physical condition
     Dosage: 20 MG, QD
     Route: 065
  2. RIVAROXABAN [Interacting]
     Active Substance: RIVAROXABAN
     Indication: Product used for unknown indication
     Dosage: 20 MG, QD
     Route: 065
  3. BISOPROLOL [Suspect]
     Active Substance: BISOPROLOL
     Indication: General physical condition
     Dosage: 5 MG, QD(BISOPROLOL FUMARATE )
     Route: 065
  4. ASPIRIN [Suspect]
     Active Substance: ASPIRIN
     Indication: Product used for unknown indication
     Dosage: 100 MG, QD(ACETYLSALICYLIC ACID)
     Route: 065
  5. FUROSEMIDE [Suspect]
     Active Substance: FUROSEMIDE
     Indication: Product used for unknown indication
     Dosage: 125 MG, QD
     Route: 065
  6. POTASSIUM [Suspect]
     Active Substance: POTASSIUM
     Indication: Product used for unknown indication
     Dosage: 600 MG, QD
     Route: 065

REACTIONS (11)
  - Ischaemic cardiomyopathy [Unknown]
  - Cardiac failure [Unknown]
  - Renal impairment [Unknown]
  - Hypertension [Unknown]
  - Left ventricular dysfunction [Unknown]
  - Hyponatraemia [Recovered/Resolved]
  - Gait disturbance [Recovered/Resolved]
  - Acute myocardial infarction [Unknown]
  - Ventricular hypokinesia [Unknown]
  - Gait disturbance [Recovered/Resolved]
  - Acute myocardial infarction [Unknown]
